FAERS Safety Report 13231345 (Version 1)
Quarter: 2017Q1

REPORT INFORMATION
  Report Type: Report from Study
  Country: None (occurrence: AU)
  Receive Date: 20170214
  Receipt Date: 20170214
  Transmission Date: 20170428
  Serious: Yes (Other)
  Sender: FDA-Public Use
  Company Number: AU-ABBVIE-17K-008-1868912-00

PATIENT
  Age: 37 Year
  Sex: Female

DRUGS (1)
  1. HUMIRA [Suspect]
     Active Substance: ADALIMUMAB
     Indication: CROHN^S DISEASE
     Route: 058
     Dates: start: 20160114

REACTIONS (5)
  - Asthenia [Recovering/Resolving]
  - Product quality issue [Unknown]
  - Crohn^s disease [Not Recovered/Not Resolved]
  - Loss of consciousness [Recovering/Resolving]
  - Motion sickness [Recovering/Resolving]

NARRATIVE: CASE EVENT DATE: 201702
